FAERS Safety Report 15618941 (Version 1)
Quarter: 2018Q4

REPORT INFORMATION
  Report Type: Spontaneous
  Country: HR (occurrence: HR)
  Receive Date: 20181114
  Receipt Date: 20181114
  Transmission Date: 20190205
  Serious: Yes (Hospitalization)
  Sender: FDA-Public Use
  Company Number: HR-ELI_LILLY_AND_COMPANY-HR201811005059

PATIENT
  Sex: Male

DRUGS (1)
  1. ZYPADHERA [Suspect]
     Active Substance: OLANZAPINE PAMOATE
     Indication: PRODUCT USED FOR UNKNOWN INDICATION
     Dosage: UNK, UNKNOWN
     Route: 065

REACTIONS (4)
  - Psychomotor skills impaired [Unknown]
  - Confusional state [Unknown]
  - Sedation [Unknown]
  - Pallor [Unknown]
